FAERS Safety Report 6883338-8 (Version None)
Quarter: 2010Q3

REPORT INFORMATION
  Report Type: 
  Country: None (occurrence: None)
  Receive Date: 20100727
  Receipt Date: 20080430
  Transmission Date: 20110219
  Serious: Yes (Hospitalization, Other)
  Sender: FDA-Public Use
  Company Number: US-PFIZER INC-2006119628

PATIENT
  Sex: Male
  Weight: 116.1 kg

DRUGS (11)
  1. CELEBREX [Suspect]
     Indication: PAIN
     Route: 048
     Dates: start: 20010602, end: 20020218
  2. VIOXX [Suspect]
     Indication: RHEUMATOID ARTHRITIS
     Route: 048
     Dates: start: 20030623
  3. ACCUPRIL [Concomitant]
     Indication: HYPERTENSION
     Dates: start: 20000124
  4. FOSINOPRIL SODIUM [Concomitant]
     Indication: HYPERTENSION
     Dates: start: 20000125
  5. ENALAPRIL MALEATE [Concomitant]
     Indication: HYPERTENSION
     Dates: start: 20001016
  6. COREG [Concomitant]
     Indication: HYPERTENSION
     Dates: start: 20020606
  7. COREG [Concomitant]
     Indication: CARDIAC DISORDER
  8. FUROSEMIDE [Concomitant]
     Indication: OEDEMA PERIPHERAL
     Dates: start: 20000125
  9. LIPITOR [Concomitant]
     Indication: BLOOD CHOLESTEROL INCREASED
     Dates: start: 20010818
  10. ACETAMINOPHEN [Concomitant]
     Indication: PAIN
     Dates: start: 20000209
  11. IBUPROFEN TABLETS [Concomitant]
     Indication: PAIN
     Dates: start: 20010501

REACTIONS (1)
  - MYOCARDIAL INFARCTION [None]
